FAERS Safety Report 4331185-3 (Version None)
Quarter: 2004Q2

REPORT INFORMATION
  Report Type: 
  Country: None (occurrence: None)
  Receive Date: 20040402
  Receipt Date: 20040330
  Transmission Date: 20050107
  Serious: Yes (Disabling)
  Sender: FDA-Public Use
  Company Number: 7705

PATIENT
  Age: 28 Year
  Sex: Male

DRUGS (4)
  1. VINCRISTINE [Suspect]
     Indication: NON-HODGKIN'S LYMPHOMA
     Dosage: 1.4 MG/M2 Q3W
  2. CYCLOPHOSPHAMIDE [Concomitant]
  3. PREDNISONE [Concomitant]
  4. DOXORUBICIN HCL [Concomitant]

REACTIONS (7)
  - DIPLOPIA [None]
  - DRUG TOXICITY [None]
  - NEUROTOXICITY [None]
  - OEDEMA [None]
  - STRABISMUS [None]
  - VITH NERVE DISORDER [None]
  - VITH NERVE PARALYSIS [None]
